FAERS Safety Report 20946528 (Version 13)
Quarter: 2025Q2

REPORT INFORMATION
  Report Type: Report from Study
  Country: US (occurrence: US)
  Receive Date: 20220610
  Receipt Date: 20250520
  Transmission Date: 20250717
  Serious: Yes (Death, Hospitalization, Other)
  Sender: TAKEDA
  Company Number: US-TAKEDA-2021TUS049563

PATIENT
  Age: 82 Year
  Sex: Male
  Weight: 60 kg

DRUGS (59)
  1. TEDUGLUTIDE [Suspect]
     Active Substance: TEDUGLUTIDE
     Indication: Short-bowel syndrome
     Dosage: 1.7 MILLIGRAM, QD
     Dates: start: 20210804
  2. TEDUGLUTIDE [Suspect]
     Active Substance: TEDUGLUTIDE
     Indication: Malabsorption
     Dosage: 0.17 MILLIGRAM, QD
     Dates: start: 20210808
  3. TEDUGLUTIDE [Suspect]
     Active Substance: TEDUGLUTIDE
     Indication: Diarrhoea
     Dosage: UNK UNK, QOD
     Dates: start: 20230605
  4. TEDUGLUTIDE [Suspect]
     Active Substance: TEDUGLUTIDE
     Dosage: 0.17 MILLILITER, QD
  5. TEDUGLUTIDE [Suspect]
     Active Substance: TEDUGLUTIDE
     Dosage: 1.95 MILLIGRAM, QOD
  6. TEDUGLUTIDE [Suspect]
     Active Substance: TEDUGLUTIDE
     Dosage: 1.7 MILLIGRAM, QD
     Dates: end: 20220517
  7. TEDUGLUTIDE [Suspect]
     Active Substance: TEDUGLUTIDE
     Dosage: 0.19 MILLILITER, QOD
  8. SIMETHICONE (DIMETHICONE) [Concomitant]
     Active Substance: DIMETHICONE
  9. SIMBRINZA [Concomitant]
     Active Substance: BRIMONIDINE TARTRATE\BRINZOLAMIDE
  10. ROCKLATAN [Concomitant]
     Active Substance: LATANOPROST\NETARSUDIL MESYLATE
  11. IRON [Concomitant]
     Active Substance: IRON
  12. CITALOPRAM HYDROBROMIDE [Concomitant]
     Active Substance: CITALOPRAM HYDROBROMIDE
     Indication: Product used for unknown indication
  13. PYRIDOXINE HYDROCHLORIDE [Concomitant]
     Active Substance: PYRIDOXINE HYDROCHLORIDE
  14. VITAMIN E [Concomitant]
     Active Substance: .ALPHA.-TOCOPHEROL
     Indication: Product used for unknown indication
  15. MAGNESIUM SULFATE [Concomitant]
     Active Substance: MAGNESIUM SULFATE
     Indication: Product used for unknown indication
  16. CALCITRIOL [Concomitant]
     Active Substance: CALCITRIOL
     Indication: Product used for unknown indication
  17. XALATAN [Concomitant]
     Active Substance: LATANOPROST
     Indication: Product used for unknown indication
  18. ZINC SULFATE [Concomitant]
     Active Substance: ZINC SULFATE
     Indication: Product used for unknown indication
  19. VITAMIN A [Concomitant]
     Active Substance: VITAMIN A
     Indication: Product used for unknown indication
  20. VITAMIN D2 [Concomitant]
     Active Substance: ERGOCALCIFEROL
     Indication: Product used for unknown indication
  21. HYDROXOCOBALAMIN [Concomitant]
     Active Substance: HYDROXOCOBALAMIN
     Indication: Product used for unknown indication
  22. ACETAMINOPHEN\HYDROCODONE [Concomitant]
     Active Substance: ACETAMINOPHEN\HYDROCODONE
     Indication: Product used for unknown indication
  23. TAMSULOSIN HYDROCHLORIDE [Concomitant]
     Active Substance: TAMSULOSIN HYDROCHLORIDE
     Indication: Product used for unknown indication
  24. SODIUM CHLORIDE [Concomitant]
     Active Substance: SODIUM CHLORIDE
     Indication: Product used for unknown indication
  25. SODIUM CHLORIDE [Concomitant]
     Active Substance: SODIUM CHLORIDE
  26. SODIUM BICARBONATE [Concomitant]
     Active Substance: SODIUM BICARBONATE
     Indication: Malabsorption
     Dosage: UNK UNK, BID
     Dates: start: 202103
  27. OMEPRAZOLE MAGNESIUM [Concomitant]
     Active Substance: OMEPRAZOLE MAGNESIUM
     Indication: Product used for unknown indication
  28. LOPERAMIDE [Concomitant]
     Active Substance: LOPERAMIDE
     Indication: Product used for unknown indication
  29. GABAPENTIN [Concomitant]
     Active Substance: GABAPENTIN
     Indication: Product used for unknown indication
  30. FLUDROCORTISONE ACETATE [Concomitant]
     Active Substance: FLUDROCORTISONE ACETATE
     Indication: Product used for unknown indication
  31. LOMOTIL [Concomitant]
     Active Substance: ATROPINE SULFATE\DIPHENOXYLATE HYDROCHLORIDE
     Indication: Product used for unknown indication
     Dosage: UNK UNK, BID
     Dates: start: 2014
  32. BREO ELLIPTA [Concomitant]
     Active Substance: FLUTICASONE FUROATE\VILANTEROL TRIFENATATE
     Indication: Product used for unknown indication
  33. AZOPT [Concomitant]
     Active Substance: BRINZOLAMIDE
     Indication: Product used for unknown indication
  34. ASPIRIN [Concomitant]
     Active Substance: ASPIRIN
     Indication: Product used for unknown indication
  35. IMODIUM [Concomitant]
     Active Substance: LOPERAMIDE HYDROCHLORIDE
     Indication: Gastrointestinal stoma complication
     Dosage: 6 MILLIGRAM, BID
     Dates: start: 2009
  36. IMODIUM [Concomitant]
     Active Substance: LOPERAMIDE HYDROCHLORIDE
     Dosage: 4 MILLIGRAM, BID
  37. TPN [Concomitant]
     Active Substance: AMINO ACIDS\DEXTROSE\ELECTROLYTES NOS\SOYBEAN OIL
  38. MORPHINE SULFATE [Concomitant]
     Active Substance: MORPHINE SULFATE
  39. ATIVAN [Concomitant]
     Active Substance: LORAZEPAM
  40. VITAMIN B12 [Concomitant]
     Active Substance: CYANOCOBALAMIN
  41. PREDNISONE [Concomitant]
     Active Substance: PREDNISONE
  42. ALBUTEROL SULFATE [Concomitant]
     Active Substance: ALBUTEROL SULFATE
  43. VAZALORE [Concomitant]
     Active Substance: ASPIRIN
  44. VALACYCLOVIR [Concomitant]
     Active Substance: VALACYCLOVIR HYDROCHLORIDE
  45. VALPROIC ACID [Concomitant]
     Active Substance: VALPROIC ACID
  46. TRELEGY ELLIPTA [Concomitant]
     Active Substance: FLUTICASONE FUROATE\UMECLIDINIUM BROMIDE\VILANTEROL TRIFENATATE
  47. MEMANTINE [Concomitant]
     Active Substance: MEMANTINE
  48. ACETAMINOPHEN [Concomitant]
     Active Substance: ACETAMINOPHEN
  49. OXYCODONE HYDROCHLORIDE [Concomitant]
     Active Substance: OXYCODONE HYDROCHLORIDE
  50. CYCLOSPORINE [Concomitant]
     Active Substance: CYCLOSPORINE
  51. METRONIDAZOLE [Concomitant]
     Active Substance: METRONIDAZOLE
  52. BRINZOLAMIDE [Concomitant]
     Active Substance: BRINZOLAMIDE
  53. MINERALS\VITAMINS [Concomitant]
     Active Substance: MINERALS\VITAMINS
  54. DORZOLAMIDE [Concomitant]
     Active Substance: DORZOLAMIDE
  55. ADVAIR HFA [Concomitant]
     Active Substance: FLUTICASONE PROPIONATE\SALMETEROL XINAFOATE
  56. UCERIS [Concomitant]
     Active Substance: BUDESONIDE
  57. COMBIGAN [Concomitant]
     Active Substance: BRIMONIDINE TARTRATE\TIMOLOL MALEATE
  58. CYANOCOBALAMIN [Concomitant]
     Active Substance: CYANOCOBALAMIN
  59. OMEPRAZOLE [Concomitant]
     Active Substance: OMEPRAZOLE

REACTIONS (23)
  - Death [Fatal]
  - Peripheral swelling [Recovered/Resolved]
  - Obstruction [Recovered/Resolved]
  - Renal failure [Unknown]
  - Dehydration [Recovering/Resolving]
  - Illness [Recovered/Resolved]
  - Blood potassium abnormal [Recovered/Resolved]
  - Upper limb fracture [Unknown]
  - Fall [Unknown]
  - Muscle spasms [Unknown]
  - Intentional product use issue [Unknown]
  - Product use issue [Unknown]
  - Back pain [Unknown]
  - Joint swelling [Unknown]
  - Mood altered [Unknown]
  - Hyperphagia [Not Recovered/Not Resolved]
  - Product physical issue [Unknown]
  - Product container issue [Unknown]
  - Product solubility abnormal [Unknown]
  - Drug interaction [Unknown]
  - Feeling jittery [Unknown]
  - Flatulence [Unknown]
  - Decreased appetite [Unknown]

NARRATIVE: CASE EVENT DATE: 20210804
